FAERS Safety Report 4929010-2 (Version None)
Quarter: 2006Q1

REPORT INFORMATION
  Report Type: 
  Country: None (occurrence: None)
  Receive Date: 20060301
  Receipt Date: 20060202
  Transmission Date: 20060701
  Serious: Yes (Other)
  Sender: FDA-Public Use
  Company Number: NZ-ROCHE-434407

PATIENT
  Age: 57 Year
  Sex: Male

DRUGS (9)
  1. CELLCEPT [Suspect]
     Indication: PROPHYLAXIS AGAINST TRANSPLANT REJECTION
     Route: 048
     Dates: start: 20051023, end: 20060202
  2. CELLCEPT [Suspect]
     Route: 048
     Dates: start: 20060202, end: 20060216
  3. ALLOPURINOL [Concomitant]
  4. PREDNISONE [Concomitant]
  5. DILTIAZEM HCL [Concomitant]
  6. CILAZAPRIL [Concomitant]
  7. CYCLOSPORINE [Concomitant]
  8. CARTIA XT [Concomitant]
  9. RANITIDINE [Concomitant]

REACTIONS (12)
  - ALOPECIA [None]
  - ARTHRALGIA [None]
  - DECREASED ACTIVITY [None]
  - DEPRESSION [None]
  - DISEASE RECURRENCE [None]
  - DRUG INTOLERANCE [None]
  - ERECTILE DYSFUNCTION [None]
  - HEADACHE [None]
  - MYALGIA [None]
  - NAUSEA [None]
  - SENSORY DISTURBANCE [None]
  - SLEEP DISORDER [None]
